FAERS Safety Report 12552901 (Version 1)
Quarter: 2016Q3

REPORT INFORMATION
  Report Type: Spontaneous
  Country: US (occurrence: None)
  Receive Date: 20160712
  Receipt Date: 20160712
  Transmission Date: 20161109
  Serious: No
  Sender: FDA-Public Use
  Company Number: None

PATIENT
  Age: 37 Year
  Sex: Male
  Weight: 117.8 kg

DRUGS (1)
  1. INFLUENZA [Suspect]
     Active Substance: INFLUENZA VIRUS VACCINE
     Indication: IMMUNISATION
     Dosage: 1 ONCE IM
     Route: 030
     Dates: start: 20101103, end: 20101103

REACTIONS (5)
  - Pyrexia [None]
  - Pruritus [None]
  - Rash [None]
  - Urticaria [None]
  - Skin exfoliation [None]

NARRATIVE: CASE EVENT DATE: 20101105
